FAERS Safety Report 12785125 (Version 3)
Quarter: 2016Q4

REPORT INFORMATION
  Report Type: Spontaneous
  Country: HR (occurrence: HR)
  Receive Date: 20160927
  Receipt Date: 20161019
  Transmission Date: 20170207
  Serious: Yes (Other)
  Sender: FDA-Public Use
  Company Number: HR-BAYER-2016-185353

PATIENT
  Age: 25 Year
  Sex: Male

DRUGS (1)
  1. NEXAVAR [Suspect]
     Active Substance: SORAFENIB
     Indication: HEPATOCELLULAR CARCINOMA
     Dosage: 400 MG, BID
     Route: 048
     Dates: start: 201504, end: 201511

REACTIONS (5)
  - Metastases to lymph nodes [None]
  - Lymphadenopathy [None]
  - Hepatocellular carcinoma [None]
  - Metastases to peritoneum [None]
  - Ascites [None]

NARRATIVE: CASE EVENT DATE: 201511
